FAERS Safety Report 10014702 (Version 1)
Quarter: 2014Q1

REPORT INFORMATION
  Report Type: Spontaneous
  Country: US (occurrence: US)
  Receive Date: 20140317
  Receipt Date: 20140317
  Transmission Date: 20141002
  Serious: Yes (Hospitalization)
  Sender: FDA-Public Use
  Company Number: US-BAYER-2014-037640

PATIENT
  Age: 46 Year
  Sex: Female
  Weight: 80.1 kg

DRUGS (13)
  1. YAZ [Suspect]
  2. OCELLA [Suspect]
  3. CALCIUM +VIT D [Concomitant]
     Route: 048
  4. MULTIVITAMIN [Concomitant]
     Route: 048
  5. DIOVAN [Concomitant]
     Dosage: UNK
     Route: 048
     Dates: start: 20100413
  6. TRAMADOL [Concomitant]
     Dosage: 50 MG, UNK
     Route: 048
     Dates: start: 20100630
  7. NABUMETONE [Concomitant]
     Dosage: 750 MG, UNK
     Route: 048
     Dates: start: 20100630
  8. VICODIN [Concomitant]
     Indication: PAIN
     Dosage: UNK
     Route: 048
     Dates: start: 20100718
  9. LORTAB [Concomitant]
     Route: 048
  10. NAPROXEN [Concomitant]
     Route: 048
  11. ZITHROMAX [Concomitant]
  12. CIPROFLOXACIN [Concomitant]
  13. MIRALAX [Concomitant]

REACTIONS (1)
  - Pulmonary embolism [None]
